FAERS Safety Report 8374232-4 (Version None)
Quarter: 2012Q2

REPORT INFORMATION
  Report Type: 
  Country: None (occurrence: None)
  Receive Date: 20120521
  Receipt Date: 20120517
  Transmission Date: 20120825
  Serious: Yes (Hospitalization)
  Sender: FDA-Public Use
  Company Number: ES-MERCK-1205ESP00027

PATIENT
  Age: 60 Year
  Sex: Female

DRUGS (8)
  1. OMEPRAZOLE [Concomitant]
     Route: 048
  2. FENOFIBRATE [Concomitant]
     Indication: HYPERLIPIDAEMIA
     Route: 048
  3. TRAZODONE HYDROCHLORIDE [Concomitant]
     Indication: DEPRESSION
     Route: 048
  4. LORMETAZEPAM [Concomitant]
     Indication: DEPRESSION
     Route: 048
  5. TOLTERODINE [Concomitant]
     Indication: URINARY INCONTINENCE
     Route: 048
  6. FLUVASTATIN SODIUM [Concomitant]
     Indication: HYPERLIPIDAEMIA
     Route: 048
  7. CLORAZEPATE DIPOTASSIUM [Concomitant]
     Indication: DEPRESSION
     Route: 048
  8. FOSAMAX PLUS D [Suspect]
     Indication: OSTEOPOROSIS
     Route: 048
     Dates: start: 20120101, end: 20120425

REACTIONS (2)
  - OSTEONECROSIS OF JAW [None]
  - JAW FRACTURE [None]
